APPROVED DRUG PRODUCT: ZONISAMIDE
Active Ingredient: ZONISAMIDE
Strength: 50MG
Dosage Form/Route: CAPSULE;ORAL
Application: A077651 | Product #002 | TE Code: AB
Applicant: GLENMARK PHARMACEUTICALS INC USA
Approved: Jan 30, 2006 | RLD: No | RS: No | Type: RX